FAERS Safety Report 8006452-2 (Version None)
Quarter: 2011Q4

REPORT INFORMATION
  Report Type: 
  Country: None (occurrence: None)
  Receive Date: 20111226
  Receipt Date: 20111209
  Transmission Date: 20120403
  Serious: Yes (Other)
  Sender: FDA-Public Use
  Company Number: PHHY2011IN108198

PATIENT
  Age: 53 Year
  Sex: Female

DRUGS (1)
  1. FEMARA [Suspect]
     Indication: BREAST CANCER

REACTIONS (3)
  - BREAST CYST [None]
  - OSTEOPENIA [None]
  - NERVOUS SYSTEM DISORDER [None]
